FAERS Safety Report 5287542-4 (Version None)
Quarter: 2007Q1

REPORT INFORMATION
  Report Type: 
  Country: None (occurrence: None)
  Receive Date: 20070108
  Receipt Date: 20051205
  Transmission Date: 20070707
  Serious: Yes (Death, Life-Threatening, Hospitalization)
  Sender: FDA-Public Use
  Company Number: HCDA20050003

PATIENT
  Age: 49 Year
  Sex: Female

DRUGS (4)
  1. ACETAMINOPHEN AND HYDROCODONE BITARTRATE [Suspect]
     Dosage: PO
     Route: 048
     Dates: start: 20040101, end: 20040101
  2. OXYCODONE HCL AND ACETAMINOPHEN [Suspect]
     Dosage: PO
     Route: 048
     Dates: start: 20040101, end: 20040101
  3. METHOCARBAMOL [Suspect]
     Dosage: PO
     Route: 048
     Dates: start: 20040101, end: 20040101
  4. TAMSULOSIN HCL [Suspect]
     Dosage: PO
     Route: 048
     Dates: start: 20040101, end: 20040101

REACTIONS (4)
  - HYPOTENSION [None]
  - INCOHERENT [None]
  - LUNG INFILTRATION [None]
  - SEPSIS [None]
